FAERS Safety Report 24562584 (Version 2)
Quarter: 2024Q4

REPORT INFORMATION
  Report Type: Report from Study
  Country: US (occurrence: US)
  Receive Date: 20241029
  Receipt Date: 20241113
  Transmission Date: 20250115
  Serious: Yes (Hospitalization)
  Sender: ABBVIE
  Company Number: US-ABBVIE-5980867

PATIENT
  Age: 71 Year
  Sex: Female
  Weight: 62 kg

DRUGS (2)
  1. CREON [Suspect]
     Active Substance: PANCRELIPASE AMYLASE\PANCRELIPASE LIPASE\PANCRELIPASE PROTEASE
     Indication: Pancreatic carcinoma
     Dosage: 2 EACH MEAL AND 1 EACH SNACK
     Route: 048
     Dates: start: 20240917
  2. NEULASTA [Concomitant]
     Active Substance: PEGFILGRASTIM
     Indication: Pancreatic carcinoma

REACTIONS (3)
  - Rheumatoid arthritis [Recovered/Resolved]
  - Headache [Recovered/Resolved]
  - Sneezing [Recovered/Resolved]

NARRATIVE: CASE EVENT DATE: 20240101
